FAERS Safety Report 15706075 (Version 3)
Quarter: 2019Q1

REPORT INFORMATION
  Report Type: Spontaneous
  Country: US (occurrence: US)
  Receive Date: 20181210
  Receipt Date: 20190206
  Transmission Date: 20190417
  Serious: Yes (Other)
  Sender: FDA-Public Use
  Company Number: US-ASTRAZENECA-2018SF60739

PATIENT
  Sex: Male
  Weight: 42.2 kg

DRUGS (6)
  1. DORNASE ALFA. [Concomitant]
     Active Substance: DORNASE ALFA
  2. NS [Concomitant]
     Active Substance: SODIUM CHLORIDE
  3. SYMBICORT [Suspect]
     Active Substance: BUDESONIDE\FORMOTEROL FUMARATE DIHYDRATE
     Indication: CHRONIC OBSTRUCTIVE PULMONARY DISEASE
     Dosage: 160/4.5 MCG TWO PUFFS TWICE DAILY
     Route: 055
  4. TOBRAMYCIN. [Concomitant]
     Active Substance: TOBRAMYCIN
  5. PULMICORT RESPULES [Suspect]
     Active Substance: BUDESONIDE
     Indication: ASTHMA
     Route: 055
  6. ALBUTEROL. [Concomitant]
     Active Substance: ALBUTEROL

REACTIONS (15)
  - Scoliosis [Unknown]
  - Respiratory failure [Unknown]
  - Autonomic nervous system imbalance [Unknown]
  - Tidal volume decreased [Unknown]
  - Dependence on respirator [Unknown]
  - Product use issue [Unknown]
  - Seizure [Unknown]
  - Lung disorder [Unknown]
  - Chest discomfort [Unknown]
  - Off label use [Unknown]
  - Drug ineffective [Unknown]
  - Condition aggravated [Unknown]
  - Asthma [Unknown]
  - Product dose omission [Unknown]
  - Intentional product misuse [Unknown]
